FAERS Safety Report 23533767 (Version 1)
Quarter: 2024Q1

REPORT INFORMATION
  Report Type: Spontaneous
  Country: US (occurrence: US)
  Receive Date: 20240216
  Receipt Date: 20240216
  Transmission Date: 20240410
  Serious: No
  Sender: FDA-Public Use
  Company Number: US-BRISTOL-MYERS SQUIBB COMPANY-2024-025712

PATIENT
  Age: 56 Year
  Sex: Male

DRUGS (1)
  1. REVLIMID [Suspect]
     Active Substance: LENALIDOMIDE
     Indication: Brain neoplasm malignant
     Route: 048
     Dates: start: 202401

REACTIONS (6)
  - Fatigue [Unknown]
  - Insomnia [Unknown]
  - Rash [Unknown]
  - Muscle spasms [Unknown]
  - Decreased appetite [Unknown]
  - Off label use [Unknown]
